FAERS Safety Report 23520292 (Version 1)
Quarter: 2024Q1

REPORT INFORMATION
  Report Type: Spontaneous
  Country: US (occurrence: US)
  Receive Date: 20240214
  Receipt Date: 20240214
  Transmission Date: 20240409
  Serious: No
  Sender: FDA-Public Use
  Company Number: US-ALMIRALL-US-2024-0287

PATIENT

DRUGS (1)
  1. KLISYRI [Suspect]
     Active Substance: TIRBANIBULIN
     Indication: Actinic keratosis

REACTIONS (3)
  - Drug intolerance [Unknown]
  - Drug ineffective [Unknown]
  - Adverse drug reaction [Unknown]
